FAERS Safety Report 17064174 (Version 1)
Quarter: 2019Q4

REPORT INFORMATION
  Report Type: Report from Study
  Country: US (occurrence: US)
  Receive Date: 20191122
  Receipt Date: 20191122
  Transmission Date: 20200122
  Serious: Yes (Hospitalization, Other)
  Sender: FDA-Public Use
  Company Number: US-SAKK-2018SA230050AA

PATIENT
  Age: 39 Year
  Sex: Female

DRUGS (2)
  1. ALEMTUZUMAB [Suspect]
     Active Substance: ALEMTUZUMAB
     Dosage: 12 MG, QD
     Route: 041
     Dates: start: 20170724, end: 20170728
  2. ALEMTUZUMAB [Suspect]
     Active Substance: ALEMTUZUMAB
     Indication: MULTIPLE SCLEROSIS
     Dosage: 12 MG, QD
     Route: 041
     Dates: start: 20180730, end: 20180801

REACTIONS (13)
  - Cerebral haemorrhage [Not Recovered/Not Resolved]
  - Stomatitis [Not Recovered/Not Resolved]
  - Pleurisy [Unknown]
  - Pain in extremity [Not Recovered/Not Resolved]
  - Throat tightness [Recovered/Resolved]
  - Immune thrombocytopenic purpura [Not Recovered/Not Resolved]
  - Abdominal pain upper [Not Recovered/Not Resolved]
  - Rash [Not Recovered/Not Resolved]
  - Blood pressure increased [Unknown]
  - Dyspnoea [Recovered/Resolved]
  - Anaphylactic shock [Unknown]
  - Headache [Recovered/Resolved]
  - Vision blurred [Not Recovered/Not Resolved]

NARRATIVE: CASE EVENT DATE: 20180730
